FAERS Safety Report 10031331 (Version 2)
Quarter: 2014Q2

REPORT INFORMATION
  Report Type: Spontaneous
  Country: US (occurrence: US)
  Receive Date: 20140324
  Receipt Date: 20140408
  Transmission Date: 20141212
  Serious: Yes (Hospitalization, Other)
  Sender: FDA-Public Use
  Company Number: US-AMGEN-USASP2014020132

PATIENT
  Age: 70 Year
  Sex: Female
  Weight: 62.59 kg

DRUGS (12)
  1. ENBREL [Suspect]
     Indication: PRODUCT USED FOR UNKNOWN INDICATION
     Dosage: 50 MG, QWK
     Route: 058
     Dates: start: 2004
  2. SYNTHROID [Concomitant]
     Dosage: 100 MUG, UNK
     Route: 048
  3. ATENOLOL [Concomitant]
     Dosage: 50 MG, UNK
     Route: 048
  4. PENICILLIN                         /00000901/ [Concomitant]
     Dosage: 250 MG, UNK
     Route: 048
  5. PRAVASTATIN [Concomitant]
     Dosage: 20 MG, UNK
     Route: 048
  6. ASACOL [Concomitant]
     Dosage: 400 MG, UNK
     Route: 048
  7. ZINC [Concomitant]
     Dosage: 50 MG, UNK
     Route: 048
  8. BIOTIN [Concomitant]
     Dosage: 5000 UNK, UNK
     Route: 048
  9. LUTEIN                             /01638501/ [Concomitant]
     Dosage: 10 MG, UNK
     Route: 048
  10. VITAMIN B12                        /00056201/ [Concomitant]
     Dosage: 100 MUG, UNK
     Route: 048
  11. CITRACAL + D                       /01438101/ [Concomitant]
     Dosage: UNK
     Route: 048
  12. PLAVIX [Concomitant]
     Dosage: 300 MG, UNK
     Route: 048

REACTIONS (3)
  - Angina unstable [Unknown]
  - Arterial stenosis [Unknown]
  - Vascular calcification [Unknown]
